FAERS Safety Report 6035972-5 (Version None)
Quarter: 2009Q1

REPORT INFORMATION
  Report Type: 
  Country: None (occurrence: None)
  Receive Date: 20090113
  Receipt Date: 20090105
  Transmission Date: 20090719
  Serious: Yes (Hospitalization)
  Sender: FDA-Public Use
  Company Number: US-JNJFOC-20081206655

PATIENT
  Sex: Male
  Weight: 40 kg

DRUGS (3)
  1. INFLIXIMAB [Suspect]
     Indication: CROHN'S DISEASE
     Dosage: NOTED AS A ONE TIME DOSE
     Route: 042
  2. PREDNISONE TAB [Concomitant]
  3. AZATHIOPRINE [Concomitant]

REACTIONS (2)
  - SMALL INTESTINAL OBSTRUCTION [None]
  - VARICELLA [None]
